FAERS Safety Report 9254616 (Version 2)
Quarter: 2013Q2

REPORT INFORMATION
  Report Type: Spontaneous
  Country: JP (occurrence: JP)
  Receive Date: 20130425
  Receipt Date: 20130604
  Transmission Date: 20140414
  Serious: No
  Sender: FDA-Public Use
  Company Number: JP-ASTELLAS-2013JP005270

PATIENT
  Age: 13 Year
  Sex: Female

DRUGS (2)
  1. VESICARE [Suspect]
     Indication: ENURESIS
     Dosage: 5 MG, UID/QD
     Route: 048
     Dates: start: 20100930, end: 20121206
  2. VESICARE [Suspect]
     Dosage: 2.5 MG, UID/QD
     Route: 048
     Dates: start: 20090805, end: 20100929

REACTIONS (2)
  - Off label use [Unknown]
  - Platelet count decreased [Recovering/Resolving]
